FAERS Safety Report 8360193-0 (Version None)
Quarter: 2012Q2

REPORT INFORMATION
  Report Type: 
  Country: None (occurrence: None)
  Receive Date: 20120515
  Receipt Date: 20120507
  Transmission Date: 20120825
  Serious: Yes (Hospitalization)
  Sender: FDA-Public Use
  Company Number: FR-SANOFI-AVENTIS-2012SA032453

PATIENT
  Age: 62 Year
  Sex: Male

DRUGS (2)
  1. RIFADIN [Suspect]
     Route: 048
     Dates: start: 20120116, end: 20120413
  2. OFLOXACIN [Suspect]
     Route: 048
     Dates: start: 20120116, end: 20120413

REACTIONS (2)
  - HYPERTRIGLYCERIDAEMIA [None]
  - PANCREATITIS [None]
